FAERS Safety Report 24744852 (Version 4)
Quarter: 2025Q1

REPORT INFORMATION
  Report Type: Spontaneous
  Country: US (occurrence: US)
  Receive Date: 20241217
  Receipt Date: 20250320
  Transmission Date: 20250408
  Serious: No
  Sender: BRISTOL-MYERS SQUIBB COMPANY
  Company Number: US-BRISTOL-MYERS SQUIBB COMPANY-2024-195577

PATIENT
  Age: 71 Year
  Sex: Female

DRUGS (1)
  1. CAMZYOS [Suspect]
     Active Substance: MAVACAMTEN
     Indication: Hypertrophic cardiomyopathy
     Route: 048

REACTIONS (4)
  - Urinary tract infection [Unknown]
  - Nasopharyngitis [Unknown]
  - Influenza [Unknown]
  - Constipation [Unknown]

NARRATIVE: CASE EVENT DATE: 20250121
